FAERS Safety Report 10322201 (Version 2)
Quarter: 2015Q1

REPORT INFORMATION
  Report Type: Other
  Country: US (occurrence: US)
  Receive Date: 20140720
  Receipt Date: 20150320
  Transmission Date: 20150720
  Serious: Yes (Hospitalization, Other)
  Sender: FDA-Public Use
  Company Number: US-GSKPPD-2014GSK023833

PATIENT
  Age: 61 Year
  Sex: Male

DRUGS (7)
  1. LASIX [Concomitant]
     Active Substance: FUROSEMIDE
  2. LANOXIN [Concomitant]
     Active Substance: DIGOXIN
  3. ALDACTONE [Concomitant]
     Active Substance: SPIRONOLACTONE
  4. ZESTRIL [Concomitant]
     Active Substance: LISINOPRIL
  5. LOPRESSOR [Concomitant]
     Active Substance: METOPROLOL TARTRATE
  6. AVANDIA [Suspect]
     Active Substance: ROSIGLITAZONE MALEATE
     Indication: DIABETES MELLITUS
     Dosage: DATES OF AVANDIA USE COULD NOT BE CONFIRMED IN RECORDS REVIEWED.
     Route: 048
  7. COUMADINE [Concomitant]
     Active Substance: WARFARIN SODIUM

REACTIONS (1)
  - Cardiac failure congestive [Recovered/Resolved]

NARRATIVE: CASE EVENT DATE: 20040704
